FAERS Safety Report 23968876 (Version 1)
Quarter: 2024Q2

REPORT INFORMATION
  Report Type: Spontaneous
  Country: US (occurrence: US)
  Receive Date: 20240612
  Receipt Date: 20240612
  Transmission Date: 20240715
  Serious: Yes (Life-Threatening, Other)
  Sender: FDA-Public Use
  Company Number: US-FreseniusKabi-FK202409186

PATIENT
  Age: 62 Year
  Sex: Female

DRUGS (3)
  1. LIDOCAINE [Suspect]
     Active Substance: LIDOCAINE
     Indication: Surgery
     Dosage: FORM OF ADMIN: INJECTABLE?2 CC OF 2%LIDOCAINE
  2. STERILE WATER [Concomitant]
     Active Substance: WATER
     Indication: Vehicle solution use
     Dosage: FOA: INJECTABLE
  3. POLYLACTIDE, L- [Concomitant]
     Active Substance: POLYLACTIDE, L-
     Indication: Surgery
     Dosage: FOA: INJECTABLE, 4 CUBIC CENTIMETERS (CC) OF INJECTABLEPLLA, DILUTED WITH 7 CC OF STERILE WATER

REACTIONS (1)
  - Anaphylactic reaction [Recovering/Resolving]
